FAERS Safety Report 15644350 (Version 1)
Quarter: 2018Q4

REPORT INFORMATION
  Report Type: Spontaneous
  Country: FR (occurrence: FR)
  Receive Date: 20181121
  Receipt Date: 20181121
  Transmission Date: 20190205
  Serious: Yes (Hospitalization)
  Sender: FDA-Public Use
  Company Number: FR-PROVELL PHARMACEUTICALS-2059155

PATIENT
  Age: 71 Year
  Sex: Female
  Weight: 70 kg

DRUGS (1)
  1. EUTHYROX [Suspect]
     Active Substance: LEVOTHYROXINE SODIUM
     Indication: HYPOTHYROIDISM
     Dates: start: 201704, end: 201709

REACTIONS (22)
  - Pelvic pain [Recovered/Resolved]
  - Nausea [Recovered/Resolved]
  - Abdominal pain lower [Recovered/Resolved]
  - Chest pain [Recovered/Resolved]
  - Glomerular filtration rate decreased [Recovered/Resolved]
  - Cystitis [Recovered/Resolved]
  - Fatigue [Recovered/Resolved]
  - Pain in extremity [Recovered/Resolved]
  - Diverticulitis [Recovered/Resolved]
  - Chest discomfort [Recovered/Resolved]
  - Pyrexia [Recovered/Resolved]
  - Malaise [Recovered/Resolved]
  - Pollakiuria [Recovered/Resolved]
  - Chronic gastritis [Recovered/Resolved]
  - Diverticulum intestinal [Recovered/Resolved]
  - Hiatus hernia [Recovered/Resolved]
  - Sleep disorder [Recovered/Resolved]
  - Palpitations [Recovered/Resolved]
  - Insomnia [Recovered/Resolved]
  - Barrett^s oesophagus [Recovered/Resolved]
  - Adverse event [Recovered/Resolved]
  - Gastric polyps [Recovered/Resolved]

NARRATIVE: CASE EVENT DATE: 2017
